FAERS Safety Report 6762791-4 (Version None)
Quarter: 2010Q2

REPORT INFORMATION
  Report Type: 
  Country: None (occurrence: None)
  Receive Date: 20100609
  Receipt Date: 20100531
  Transmission Date: 20101027
  Serious: Yes (Other)
  Sender: FDA-Public Use
  Company Number: B0659398A

PATIENT
  Age: 42 Year
  Sex: Male

DRUGS (1)
  1. AUGMENTIN '125' [Suspect]
     Indication: UPPER RESPIRATORY TRACT INFECTION
     Dosage: 1000MG TWICE PER DAY
     Route: 048
     Dates: start: 20100527, end: 20100529

REACTIONS (2)
  - FATIGUE [None]
  - GASTROENTERITIS [None]
